FAERS Safety Report 15124602 (Version 1)
Quarter: 2018Q3

REPORT INFORMATION
  Report Type: Spontaneous
  Country: US (occurrence: US)
  Receive Date: 20180710
  Receipt Date: 20180710
  Transmission Date: 20181010
  Serious: No
  Sender: FDA-Public Use
  Company Number: US-PFIZER INC-2018276295

PATIENT
  Age: 82 Year

DRUGS (1)
  1. CELECOXIB. [Suspect]
     Active Substance: CELECOXIB
     Dosage: 200 MG, DAILY(CELEBREX GENERIC 200MG / QTY 90 / DAYS SUPPLY 90)

REACTIONS (1)
  - Dysphagia [Unknown]
